FAERS Safety Report 5615042-8 (Version None)
Quarter: 2008Q1

REPORT INFORMATION
  Report Type: 
  Country: None (occurrence: None)
  Receive Date: 20080206
  Receipt Date: 20080130
  Transmission Date: 20080703
  Serious: Yes (Hospitalization)
  Sender: FDA-Public Use
  Company Number: US-SOLVAY-00208000469

PATIENT
  Age: 22796 Day
  Sex: Male
  Weight: 104.5 kg

DRUGS (2)
  1. ANDROGEL [Suspect]
     Indication: BLOOD TESTOSTERONE DECREASED
     Dosage: DAILY DOSE: 5 GRAM(S)
     Route: 062
     Dates: start: 20060101
  2. TENORMIN [Concomitant]
     Indication: HYPERTENSION
     Dosage: DAILY DOSE: 50 MILLIGRAM(S)
     Route: 048
     Dates: start: 19820101

REACTIONS (2)
  - ASTHENIA [None]
  - KNEE ARTHROPLASTY [None]
